FAERS Safety Report 11179802 (Version 1)
Quarter: 2015Q2

REPORT INFORMATION
  Report Type: Not Available
  Country: GB (occurrence: GB)
  Receive Date: 20150611
  Receipt Date: 20150611
  Transmission Date: 20150821
  Serious: Yes (Hospitalization, Other)
  Sender: FDA-Public Use
  Company Number: GB-BEH-2015051532

PATIENT
  Age: 68 Year
  Sex: Male
  Weight: 78 kg

DRUGS (6)
  1. ALFUZOSIN [Concomitant]
     Active Substance: ALFUZOSIN
  2. IMMUNOGLOBULIN [Suspect]
     Active Substance: HUMAN IMMUNOGLOBULIN G
     Indication: CHRONIC INFLAMMATORY DEMYELINATING POLYRADICULONEUROPATHY
     Dosage: 1/7 WEEKS
     Route: 042
     Dates: start: 20050501, end: 20150521
  3. PERINDOPRIL [Concomitant]
     Active Substance: PERINDOPRIL
  4. AMITRIPTYLINE [Concomitant]
     Active Substance: AMITRIPTYLINE
  5. NAPROXEN. [Concomitant]
     Active Substance: NAPROXEN
  6. TRAMADOL HYDROCHLORIDE. [Concomitant]
     Active Substance: TRAMADOL HYDROCHLORIDE

REACTIONS (3)
  - Hemiparesis [Recovering/Resolving]
  - Ischaemic stroke [Recovering/Resolving]
  - Dysarthria [Recovering/Resolving]

NARRATIVE: CASE EVENT DATE: 20150516
